FAERS Safety Report 13642859 (Version 3)
Quarter: 2017Q3

REPORT INFORMATION
  Report Type: Spontaneous
  Country: BR (occurrence: BR)
  Receive Date: 20170612
  Receipt Date: 20170914
  Transmission Date: 20171127
  Serious: Yes (Hospitalization)
  Sender: FDA-Public Use
  Company Number: BR-AMGEN-BRASP2017086099

PATIENT
  Age: 84 Year
  Sex: Female
  Weight: 49 kg

DRUGS (8)
  1. PROLIA [Suspect]
     Active Substance: DENOSUMAB
     Indication: RHEUMATOID ARTHRITIS
     Dosage: Q6MO
     Route: 058
     Dates: start: 20161128
  2. CHONDROITIN GLUCOSAMIN [Concomitant]
     Active Substance: CHONDROITIN SULFATE A\GLUCOSAMINE
     Dosage: UNK UNK, BID
  3. ALENDRONATE SODIUM. [Concomitant]
     Active Substance: ALENDRONATE SODIUM
     Indication: SPINAL FRACTURE
     Dosage: 70 MG, QWK
  4. PREDNISONE. [Concomitant]
     Active Substance: PREDNISONE
     Indication: RHEUMATOID ARTHRITIS
     Dosage: 5 MG, QD
  5. CENTRUM [Concomitant]
     Active Substance: VITAMINS
     Dosage: 1 DF, QD
  6. NEOSALDINA [Concomitant]
     Active Substance: CAFFEINE\ISOMETHEPTENE\METHIMAZOLE
     Dosage: UNK UNK, AS NECESSARY
  7. HYDROCHLOROTHIAZIDE. [Concomitant]
     Active Substance: HYDROCHLOROTHIAZIDE
     Indication: RENAL DISORDER
  8. CALCIUM [Concomitant]
     Active Substance: CALCIUM
     Dosage: 1 DF, QD

REACTIONS (4)
  - Rheumatoid arthritis [Unknown]
  - Procedural pain [Unknown]
  - Nosocomial infection [Recovering/Resolving]
  - Off label use [Unknown]

NARRATIVE: CASE EVENT DATE: 201611
